FAERS Safety Report 7833965-6 (Version None)
Quarter: 2011Q4

REPORT INFORMATION
  Report Type: 
  Country: None (occurrence: None)
  Receive Date: 20111024
  Receipt Date: 20111017
  Transmission Date: 20120403
  Serious: Yes (Other)
  Sender: FDA-Public Use
  Company Number: MT-ABBOTT-11P-103-0865489-00

PATIENT
  Age: 55 Year
  Sex: Male

DRUGS (1)
  1. CLARITHROMYCIN [Suspect]
     Indication: UPPER RESPIRATORY TRACT INFECTION
     Route: 048
     Dates: start: 20111011, end: 20111014

REACTIONS (3)
  - AMNESIA [None]
  - CONFUSIONAL STATE [None]
  - SPEECH DISORDER [None]
